FAERS Safety Report 6899907 (Version 7)
Quarter: 2014Q2

REPORT INFORMATION
  Report Type: Spontaneous
  Country: NO (occurrence: NO)
  Receive Date: 20090203
  Receipt Date: 20140630
  Transmission Date: 20141212
  Serious: Yes (Life-Threatening, Hospitalization)
  Sender: FDA-Public Use
  Company Number: NO-ASTRAZENECA-2009SE00575

PATIENT
  Age: 18 Year
  Sex: Male
  Weight: 139 kg

DRUGS (16)
  1. SEROQUEL [Suspect]
     Indication: ATTENTION DEFICIT/HYPERACTIVITY DISORDER
     Route: 048
     Dates: start: 200504
  2. SEROQUEL [Suspect]
     Indication: MENTAL DISORDER
     Route: 048
     Dates: start: 200504
  3. SEROQUEL [Suspect]
     Indication: ATTENTION DEFICIT/HYPERACTIVITY DISORDER
     Route: 048
     Dates: start: 20060209, end: 20060803
  4. SEROQUEL [Suspect]
     Indication: MENTAL DISORDER
     Route: 048
     Dates: start: 20060209, end: 20060803
  5. SEROQUEL [Suspect]
     Indication: ATTENTION DEFICIT/HYPERACTIVITY DISORDER
     Route: 048
     Dates: start: 20060804
  6. SEROQUEL [Suspect]
     Indication: MENTAL DISORDER
     Route: 048
     Dates: start: 20060804
  7. SEROQUEL [Suspect]
     Indication: ATTENTION DEFICIT/HYPERACTIVITY DISORDER
     Route: 048
     Dates: end: 20050612
  8. SEROQUEL [Suspect]
     Indication: MENTAL DISORDER
     Route: 048
     Dates: end: 20050612
  9. SEROQUEL [Suspect]
     Indication: ATTENTION DEFICIT/HYPERACTIVITY DISORDER
     Route: 048
     Dates: start: 20050613, end: 20050822
  10. SEROQUEL [Suspect]
     Indication: MENTAL DISORDER
     Route: 048
     Dates: start: 20050613, end: 20050822
  11. SEROQUEL [Suspect]
     Indication: ATTENTION DEFICIT/HYPERACTIVITY DISORDER
     Route: 048
     Dates: start: 20060810, end: 20060811
  12. SEROQUEL [Suspect]
     Indication: MENTAL DISORDER
     Route: 048
     Dates: start: 20060810, end: 20060811
  13. CONCERTA [Suspect]
     Indication: ATTENTION DEFICIT/HYPERACTIVITY DISORDER
     Route: 048
     Dates: start: 20051003, end: 20051030
  14. CONCERTA [Suspect]
     Indication: ATTENTION DEFICIT/HYPERACTIVITY DISORDER
     Route: 048
     Dates: start: 20051031
  15. CONCERTA [Suspect]
     Indication: ATTENTION DEFICIT/HYPERACTIVITY DISORDER
     Route: 048
     Dates: start: 20060810, end: 20060811
  16. CONCERTA [Suspect]
     Indication: ATTENTION DEFICIT/HYPERACTIVITY DISORDER
     Route: 048
     Dates: start: 200506

REACTIONS (8)
  - Congestive cardiomyopathy [Recovered/Resolved with Sequelae]
  - Haematemesis [Unknown]
  - Acute hepatic failure [Unknown]
  - Cyanosis [Unknown]
  - Renal failure acute [Unknown]
  - Dyspnoea [Unknown]
  - Cardiac failure [Not Recovered/Not Resolved]
  - Tachycardia [Unknown]
